FAERS Safety Report 13059605 (Version 2)
Quarter: 2017Q2

REPORT INFORMATION
  Report Type: Spontaneous
  Country: US (occurrence: US)
  Receive Date: 20161223
  Receipt Date: 20170601
  Transmission Date: 20170830
  Serious: No
  Sender: FDA-Public Use
  Company Number: US-ELI_LILLY_AND_COMPANY-US201612008303

PATIENT
  Sex: Female

DRUGS (7)
  1. GLIPIZIDE. [Concomitant]
     Active Substance: GLIPIZIDE
     Indication: PRODUCT USED FOR UNKNOWN INDICATION
     Dosage: UNK, UNKNOWN
     Route: 065
  2. AMLODIPINE BESYLATE. [Concomitant]
     Active Substance: AMLODIPINE BESYLATE
     Indication: HYPERTENSION
     Dosage: 5 MG, UNKNOWN
     Route: 065
  3. HUMALOG MIX75/25 [Suspect]
     Active Substance: INSULIN LISPRO
     Dosage: 10 U, BID
     Route: 065
  4. HUMALOG MIX75/25 [Suspect]
     Active Substance: INSULIN LISPRO
     Indication: TYPE 2 DIABETES MELLITUS
     Dosage: 3 U, QD
     Route: 065
     Dates: start: 201610
  5. HUMALOG MIX75/25 [Suspect]
     Active Substance: INSULIN LISPRO
     Dosage: 8 U, EACH MORNING
     Route: 065
     Dates: end: 20161218
  6. HUMALOG MIX75/25 [Suspect]
     Active Substance: INSULIN LISPRO
     Dosage: 5 U, EACH MORNING
     Route: 065
  7. HUMALOG MIX75/25 [Suspect]
     Active Substance: INSULIN LISPRO
     Dosage: 10 U, EACH EVENING
     Route: 065
     Dates: end: 20161218

REACTIONS (18)
  - Blood glucose increased [Not Recovered/Not Resolved]
  - Arthralgia [Unknown]
  - Mobility decreased [Unknown]
  - Asthenia [Unknown]
  - Malaise [Unknown]
  - Visual impairment [Unknown]
  - Drug hypersensitivity [Unknown]
  - Palpitations [Not Recovered/Not Resolved]
  - Thirst [Unknown]
  - Drug intolerance [Unknown]
  - Dizziness [Unknown]
  - Alopecia [Unknown]
  - Fall [Unknown]
  - Drug dose omission [Unknown]
  - Drug ineffective [Unknown]
  - Headache [Unknown]
  - Sleep disorder [Unknown]
  - Tremor [Unknown]
